FAERS Safety Report 14188043 (Version 3)
Quarter: 2019Q1

REPORT INFORMATION
  Report Type: Spontaneous
  Country: CN (occurrence: CN)
  Receive Date: 20171114
  Receipt Date: 20190118
  Transmission Date: 20190417
  Serious: Yes (Death)
  Sender: FDA-Public Use
  Company Number: CN-009507513-1711CHN001424

PATIENT
  Age: 24 Year
  Sex: Male
  Weight: 60 kg

DRUGS (5)
  1. NOXAFIL [Suspect]
     Active Substance: POSACONAZOLE
     Indication: ANTIFUNGAL PROPHYLAXIS
     Dosage: 400 MG, BID
     Route: 048
     Dates: start: 20170930, end: 20171005
  2. NOXAFIL [Suspect]
     Active Substance: POSACONAZOLE
     Dosage: 200 MG, QID
     Route: 048
     Dates: start: 20171006, end: 20171013
  3. NOXAFIL [Suspect]
     Active Substance: POSACONAZOLE
     Dosage: 200 MG, TID
     Route: 048
     Dates: start: 20171014, end: 20171018
  4. NOXAFIL [Suspect]
     Active Substance: POSACONAZOLE
     Dosage: 200 MG, BID
     Route: 048
     Dates: start: 20171019, end: 20171026
  5. NOXAFIL [Suspect]
     Active Substance: POSACONAZOLE
     Dosage: 100 MG, TID
     Route: 048
     Dates: start: 20171027, end: 20171109

REACTIONS (8)
  - Blood sodium decreased [Recovered/Resolved]
  - Infection [Fatal]
  - Blood uric acid decreased [Recovered/Resolved]
  - Total bile acids increased [Not Recovered/Not Resolved]
  - PCO2 decreased [Recovered/Resolved]
  - Pyrexia [Unknown]
  - Blood uric acid decreased [Recovered/Resolved]
  - Blood lactate dehydrogenase increased [Recovered/Resolved]

NARRATIVE: CASE EVENT DATE: 20171025
